FAERS Safety Report 11309064 (Version 7)
Quarter: 2018Q2

REPORT INFORMATION
  Report Type: Report from Study
  Country: US (occurrence: US)
  Receive Date: 20150724
  Receipt Date: 20180601
  Transmission Date: 20180711
  Serious: Yes (Life-Threatening, Hospitalization, Other)
  Sender: FDA-Public Use
  Company Number: US-SA-2015SA105837

PATIENT
  Age: 70 Year
  Sex: Female

DRUGS (14)
  1. INSULIN GLARGINE [Suspect]
     Active Substance: INSULIN GLARGINE
     Indication: TYPE 2 DIABETES MELLITUS
     Dosage: 30 DF,QD
     Route: 058
     Dates: start: 20150101
  2. INSULIN GLARGINE [Suspect]
     Active Substance: INSULIN GLARGINE
     Dosage: 30 DF,QD
     Route: 058
  3. INSULIN GLARGINE [Suspect]
     Active Substance: INSULIN GLARGINE
     Dosage: 78 DF,QD
     Route: 058
     Dates: start: 2017
  4. MULTAQ [Suspect]
     Active Substance: DRONEDARONE
     Indication: ATRIAL FIBRILLATION
     Dosage: 400 MG,BID
     Route: 048
     Dates: start: 20151211
  5. INSULIN GLARGINE [Suspect]
     Active Substance: INSULIN GLARGINE
     Indication: BLOOD GLUCOSE INCREASED
     Dosage: 25 DF,QD
     Route: 058
     Dates: start: 20151214
  6. INSULIN GLARGINE [Suspect]
     Active Substance: INSULIN GLARGINE
     Dosage: 80 DF,QD
     Route: 058
  7. BABY ASPIRIN [Concomitant]
     Active Substance: ASPIRIN
     Dosage: UNK UNK,QD
     Route: 065
  8. WARFARIN [Concomitant]
     Active Substance: WARFARIN
     Dosage: UNK UNK,UNK
     Route: 065
  9. INSULIN GLARGINE [Suspect]
     Active Substance: INSULIN GLARGINE
     Dosage: 80 DF,QD
     Route: 058
  10. TORSEMIDE. [Concomitant]
     Active Substance: TORSEMIDE
     Dosage: 20 MG,BID
     Route: 065
  11. INSULIN GLARGINE [Suspect]
     Active Substance: INSULIN GLARGINE
     Dosage: 56 DF,QD
     Route: 058
  12. INSULIN GLARGINE [Suspect]
     Active Substance: INSULIN GLARGINE
     Dosage: 80 DF,QD
     Route: 058
  13. VALSARTAN. [Concomitant]
     Active Substance: VALSARTAN
     Dosage: UNK UNK,UNK
     Route: 065
  14. SOTALOL. [Concomitant]
     Active Substance: SOTALOL
     Dosage: UNK UNK,UNK
     Route: 065

REACTIONS (26)
  - Cerebrovascular accident [Unknown]
  - Cardiac failure congestive [Recovered/Resolved]
  - Dehydration [Unknown]
  - Weight increased [Recovered/Resolved]
  - Visual impairment [Recovered/Resolved]
  - Dysphonia [Unknown]
  - Impaired driving ability [Not Recovered/Not Resolved]
  - Malaise [Unknown]
  - Cerebrovascular accident [Recovered/Resolved]
  - Head injury [Recovered/Resolved]
  - Blood glucose increased [Not Recovered/Not Resolved]
  - Memory impairment [Recovering/Resolving]
  - Cataract [Recovered/Resolved]
  - Weight decreased [Recovered/Resolved]
  - Fall [Recovered/Resolved]
  - Fatigue [Unknown]
  - Hospitalisation [Recovered/Resolved]
  - Reading disorder [Unknown]
  - Gait disturbance [Recovered/Resolved]
  - Vision blurred [Not Recovered/Not Resolved]
  - Gait disturbance [Not Recovered/Not Resolved]
  - Atrial fibrillation [Unknown]
  - Cataract [Recovered/Resolved]
  - Arrhythmia [Recovered/Resolved]
  - Limb discomfort [Recovered/Resolved]
  - Product use issue [Unknown]

NARRATIVE: CASE EVENT DATE: 2015
